FAERS Safety Report 6578366-6 (Version None)
Quarter: 2010Q1

REPORT INFORMATION
  Report Type: 
  Country: None (occurrence: None)
  Receive Date: 20100211
  Receipt Date: 20100209
  Transmission Date: 20100710
  Serious: Yes (Other)
  Sender: FDA-Public Use
  Company Number: KR-ROXANE LABORATORIES, INC.-2010-RO-00145RO

PATIENT
  Age: 45 Year
  Sex: Male

DRUGS (8)
  1. ZOLPIDEM [Suspect]
     Indication: INSOMNIA
  2. ZOLPIDEM [Suspect]
     Dosage: 10 MG
  3. MELOXICAM [Suspect]
     Indication: NEURALGIA
     Dosage: 15 MG
  4. GABAPENTIN [Suspect]
     Indication: NEURALGIA
     Dosage: 300 MG
  5. PRAMIPEXOLE DIHYDROCHLORIDE [Concomitant]
     Indication: INSOMNIA
  6. PRAMIPEXOLE DIHYDROCHLORIDE [Concomitant]
     Indication: RESTLESS LEGS SYNDROME
  7. CLONAZEPAM [Concomitant]
     Indication: INSOMNIA
     Dosage: 0.25 MG
  8. CLONAZEPAM [Concomitant]
     Indication: RESTLESS LEGS SYNDROME

REACTIONS (3)
  - POOR QUALITY SLEEP [None]
  - SLEEP-RELATED EATING DISORDER [None]
  - WEIGHT INCREASED [None]
